FAERS Safety Report 6958735-2 (Version None)
Quarter: 2010Q3

REPORT INFORMATION
  Report Type: 
  Country: None (occurrence: None)
  Receive Date: 20100831
  Receipt Date: 20100818
  Transmission Date: 20110219
  Serious: Yes (Other)
  Sender: FDA-Public Use
  Company Number: PHHY2010US55189

PATIENT
  Sex: Male

DRUGS (4)
  1. FORADIL [Suspect]
     Indication: ASTHMA
     Dosage: 1 INHALATION ONCE OR TWICE A DAY
  2. BENADRYL [Concomitant]
  3. PULMICORT [Concomitant]
  4. ALBUTEROL [Concomitant]
     Dosage: UNK

REACTIONS (2)
  - CONSTIPATION [None]
  - INSOMNIA [None]
